FAERS Safety Report 17172159 (Version 2)
Quarter: 2020Q1

REPORT INFORMATION
  Report Type: Spontaneous
  Country: US (occurrence: US)
  Receive Date: 20191219
  Receipt Date: 20200210
  Transmission Date: 20200409
  Serious: Yes (Death, Hospitalization, Other)
  Sender: FDA-Public Use
  Company Number: US-009507513-1912USA008403

PATIENT
  Sex: Male
  Weight: 54.42 kg

DRUGS (13)
  1. ZOLOFT [Concomitant]
     Active Substance: SERTRALINE HYDROCHLORIDE
     Indication: DEPRESSION
     Dosage: 1 TABLET (100 MILLIGRAMS), BY ORAL ROUTE ONCE DAILY FOR 90 AYS
     Route: 048
     Dates: start: 20170320
  2. ZOLOFT [Concomitant]
     Active Substance: SERTRALINE HYDROCHLORIDE
     Indication: ANXIETY
  3. JANUVIA [Suspect]
     Active Substance: SITAGLIPTIN PHOSPHATE
     Indication: DIABETES MELLITUS
     Dosage: 1 TABLET (100 MILLIGRAM), ONCE DAILY FOR 90 DAYS
     Route: 048
     Dates: start: 20170322, end: 20171226
  4. FENOFIBRATE. [Concomitant]
     Active Substance: FENOFIBRATE
     Indication: BLOOD CHOLESTEROL INCREASED
     Dosage: 1 TABLET, BY MOUTH EVERY DAY FOR 90 DAYS
     Route: 048
     Dates: start: 20170519
  5. FENOFIBRATE. [Concomitant]
     Active Substance: FENOFIBRATE
     Dosage: 1 TABLET, BY MOUTH EVERY DAY FOR 90 DAYS
     Route: 048
     Dates: start: 20171023
  6. GLIMEPIRIDE. [Concomitant]
     Active Substance: GLIMEPIRIDE
     Dosage: 1 TABLET, EVERY DAY
     Route: 048
     Dates: start: 20171023
  7. PRAVASTATIN. [Concomitant]
     Active Substance: PRAVASTATIN
     Indication: HYPERLIPIDAEMIA
     Dosage: 1 TABLET (80 MILLIGRAM), BY ORAL ROUTE ONCE DAILY AT BEDTIME FOR 90 DAYS
     Route: 048
     Dates: start: 20171023
  8. GLIMEPIRIDE. [Concomitant]
     Active Substance: GLIMEPIRIDE
     Indication: DIABETES MELLITUS
     Dosage: 1 TABLET, EVERY DAY
     Route: 048
     Dates: start: 20170322
  9. METFORMIN [Concomitant]
     Active Substance: METFORMIN HYDROCHLORIDE
     Indication: DIABETES MELLITUS
     Dosage: 1 TABLET, BY MOUTH TWICE A DAY WITH MORNING AND EVENING MEALS
     Route: 048
     Dates: start: 20170320
  10. OMEPRAZOLE. [Concomitant]
     Active Substance: OMEPRAZOLE
     Indication: PRODUCT USED FOR UNKNOWN INDICATION
     Dosage: 1 CAPSULE (40 MILLIGRAMS), ORAL ROUTE ONCE DAILY BEFORE A MEAL
     Route: 048
     Dates: start: 20170824
  11. PRAVASTATIN. [Concomitant]
     Active Substance: PRAVASTATIN
     Indication: BLOOD CHOLESTEROL INCREASED
     Dosage: 1 TABLET (80 MILLIGRAM), BY ORAL ROUTE ONCE DAILY AT BEDTIME FOR 90 DAYS
     Route: 048
     Dates: start: 20170322
  12. METFORMIN [Concomitant]
     Active Substance: METFORMIN HYDROCHLORIDE
     Dosage: 1 TABLET, BY MOUTH TWICE A DAY WITH MORNING AND EVENING MEALS
     Route: 048
     Dates: start: 20171023
  13. OMEPRAZOLE. [Concomitant]
     Active Substance: OMEPRAZOLE
     Dosage: 1 CAPSULE (40 MILLIGRAMS), ORAL ROUTE ONCE DAILY BEFORE A MEAL FOR 90 DAYS
     Route: 048
     Dates: start: 20171023

REACTIONS (10)
  - Blood glucose increased [Unknown]
  - Gallbladder adenocarcinoma [Unknown]
  - Hyperglycaemia [Unknown]
  - Death [Fatal]
  - Drug ineffective [Unknown]
  - Vision blurred [Unknown]
  - Abdominal pain lower [Unknown]
  - Urinary retention [Recovered/Resolved]
  - Mesenteric fibrosis [Unknown]
  - Depression [Unknown]

NARRATIVE: CASE EVENT DATE: 2017
